FAERS Safety Report 5717731-3 (Version None)
Quarter: 2008Q2

REPORT INFORMATION
  Report Type: 
  Country: None (occurrence: None)
  Receive Date: 20080425
  Receipt Date: 20080415
  Transmission Date: 20081010
  Serious: No
  Sender: FDA-Public Use
  Company Number: GB-BAXTER-2008BH003237

PATIENT
  Age: 57 Year
  Sex: Male

DRUGS (2)
  1. GAMMAGARD LIQUID [Suspect]
     Indication: DRUG USE FOR UNKNOWN INDICATION
     Route: 065
     Dates: start: 20080325, end: 20080325
  2. GAMMAGARD LIQUID [Suspect]
     Route: 065
     Dates: start: 20080326, end: 20080328

REACTIONS (1)
  - URTICARIA [None]
